FAERS Safety Report 7595267-5 (Version None)
Quarter: 2011Q3

REPORT INFORMATION
  Report Type: 
  Country: None (occurrence: None)
  Receive Date: 20110707
  Receipt Date: 20110704
  Transmission Date: 20111222
  Serious: Yes (Life-Threatening, Hospitalization, Other)
  Sender: FDA-Public Use
  Company Number: DE-PFIZER INC-2010141388

PATIENT
  Age: 4 Year
  Sex: Male
  Weight: 23 kg

DRUGS (4)
  1. SOMATROPIN [Suspect]
     Indication: HYPOPITUITARISM
     Dosage: 0.5 MG, 1X/DAY
     Dates: start: 20100616
  2. HYDROCORTISONE [Concomitant]
     Indication: HYPOPITUITARISM
     Dosage: 5MG/2.5MG/2.5MG DAILY
  3. LEVOTHYROXINE SODIUM [Concomitant]
     Indication: HYPOPITUITARISM
     Dosage: 62.5 UG, UNK
  4. MINRIN [Concomitant]
     Indication: HYPOPITUITARISM
     Dosage: UNK, AS NEEDED

REACTIONS (2)
  - CRANIOPHARYNGIOMA [None]
  - DISEASE PROGRESSION [None]
